FAERS Safety Report 24465999 (Version 1)
Quarter: 2024Q4

REPORT INFORMATION
  Report Type: Report from Study
  Country: US (occurrence: US)
  Receive Date: 20241018
  Receipt Date: 20241018
  Transmission Date: 20250115
  Serious: No
  Sender: ROCHE
  Company Number: US-ROCHE-3530635

PATIENT
  Age: 60 Year
  Sex: Female

DRUGS (26)
  1. XOLAIR [Suspect]
     Active Substance: OMALIZUMAB
     Indication: Asthma
     Route: 065
  2. XOLAIR [Suspect]
     Active Substance: OMALIZUMAB
     Route: 065
  3. AMOXICILLIN [Concomitant]
     Active Substance: AMOXICILLIN
  4. ASPIRIN [Concomitant]
     Active Substance: ASPIRIN
  5. LEVOFLOXACIN [Concomitant]
     Active Substance: LEVOFLOXACIN
  6. MOXIFLOXACIN [Concomitant]
     Active Substance: MOXIFLOXACIN
  7. PENICILLIN [Concomitant]
     Active Substance: PENICILLIN
  8. ALBUTEROL [Concomitant]
     Active Substance: ALBUTEROL
  9. ATORVASTATIN [Concomitant]
     Active Substance: ATORVASTATIN
  10. BENZONATATE [Concomitant]
     Active Substance: BENZONATATE
  11. VALISONE [Concomitant]
     Active Substance: BETAMETHASONE VALERATE
  12. CLONAZEPAM [Concomitant]
     Active Substance: CLONAZEPAM
  13. FLEXERIL [Concomitant]
     Active Substance: CYCLOBENZAPRINE HYDROCHLORIDE
  14. CYMBALTA [Concomitant]
     Active Substance: DULOXETINE HYDROCHLORIDE
  15. EPINEPHRINE [Concomitant]
     Active Substance: EPINEPHRINE
  16. FLUTICASONE [Concomitant]
     Active Substance: FLUTICASONE
  17. FOLIC ACID [Concomitant]
     Active Substance: FOLIC ACID
  18. FUROSEMIDE [Concomitant]
     Active Substance: FUROSEMIDE
  19. GABAPENTIN [Concomitant]
     Active Substance: GABAPENTIN
  20. IPRATROPIUM [Concomitant]
     Active Substance: IPRATROPIUM
  21. LEVEMIR [Concomitant]
     Active Substance: INSULIN DETEMIR
  22. LOSARTAN [Concomitant]
     Active Substance: LOSARTAN
  23. METFORMIN [Concomitant]
     Active Substance: METFORMIN HYDROCHLORIDE
  24. MONTELUKAST [Concomitant]
     Active Substance: MONTELUKAST
  25. NEBIVOLOL [Concomitant]
     Active Substance: NEBIVOLOL
  26. DEXAMETHASONE [Concomitant]
     Active Substance: DEXAMETHASONE

REACTIONS (5)
  - Wheezing [Unknown]
  - Dyspnoea [Unknown]
  - Cough [Unknown]
  - Anxiety [Unknown]
  - Muscle spasms [Unknown]
